FAERS Safety Report 15874245 (Version 1)
Quarter: 2019Q1

REPORT INFORMATION
  Report Type: Other
  Country: US (occurrence: US)
  Receive Date: 20190126
  Receipt Date: 20190126
  Transmission Date: 20190417
  Serious: No
  Sender: FDA-Public Use
  Company Number: US-ACORDA-ACO_152133_2018

PATIENT
  Age: 26 Year
  Sex: Male

DRUGS (1)
  1. AMPYRA [Suspect]
     Active Substance: DALFAMPRIDINE
     Indication: MULTIPLE SCLEROSIS
     Dosage: 10 MG
     Route: 065

REACTIONS (10)
  - Depression [Unknown]
  - Cognitive disorder [Unknown]
  - Multiple sclerosis relapse [Unknown]
  - Fatigue [Unknown]
  - Asthenopia [Recovered/Resolved]
  - Product dose omission [Recovered/Resolved]
  - Dysstasia [Unknown]
  - Temperature intolerance [Unknown]
  - Gait disturbance [Unknown]
  - Hemiparesis [Unknown]

NARRATIVE: CASE EVENT DATE: 201807
